FAERS Safety Report 7386282-5 (Version None)
Quarter: 2011Q1

REPORT INFORMATION
  Report Type: 
  Country: None (occurrence: None)
  Receive Date: 20110331
  Receipt Date: 20110316
  Transmission Date: 20110831
  Serious: Yes (Hospitalization)
  Sender: FDA-Public Use
  Company Number: PHHY2011US22478

PATIENT
  Sex: Female
  Weight: 99.79 kg

DRUGS (7)
  1. LORTAB [Concomitant]
     Dosage: 10/500 MG
  2. PRILOSEC [Concomitant]
     Dosage: 20 MG,
  3. HYDROCHLOROTHIAZIDE [Concomitant]
  4. RECLAST [Suspect]
     Indication: OSTEOPOROSIS POSTMENOPAUSAL
     Dosage: 5 MG,
     Route: 042
     Dates: start: 20110308
  5. NEURONTIN [Concomitant]
  6. CYMBALTA [Concomitant]
     Dosage: 30 MG,
  7. FLEXERIL [Concomitant]

REACTIONS (5)
  - INFLUENZA LIKE ILLNESS [None]
  - CHEST DISCOMFORT [None]
  - MOUTH ULCERATION [None]
  - PYREXIA [None]
  - CHEST PAIN [None]
